FAERS Safety Report 4607176-1 (Version None)
Quarter: 2005Q1

REPORT INFORMATION
  Report Type: 
  Country: None (occurrence: None)
  Receive Date: 20050311
  Receipt Date: 20050311
  Transmission Date: 20050727
  Serious: Yes (Life-Threatening)
  Sender: FDA-Public Use
  Company Number: None

PATIENT
  Age: 46 Year
  Sex: Male
  Weight: 77.5651 kg

DRUGS (1)
  1. LEVAQUIN [Suspect]
     Indication: BRONCHITIS
     Dosage: 1 PILL / ORAL
     Route: 048
     Dates: start: 20050214

REACTIONS (5)
  - APHONIA [None]
  - COUGH [None]
  - DYSPNOEA [None]
  - INSOMNIA [None]
  - SWELLING FACE [None]
